FAERS Safety Report 6188468-4 (Version None)
Quarter: 2009Q2

REPORT INFORMATION
  Report Type: 
  Country: None (occurrence: None)
  Receive Date: 20090513
  Receipt Date: 20090507
  Transmission Date: 20091009
  Serious: Yes (Hospitalization)
  Sender: FDA-Public Use
  Company Number: JP-AVENTIS-200911264JP

PATIENT
  Age: 50 Year
  Sex: Female

DRUGS (4)
  1. LEFLUNOMIDE [Suspect]
     Route: 048
     Dates: start: 20080601, end: 20080601
  2. MTX                                /00113801/ [Concomitant]
     Route: 048
     Dates: start: 19980101
  3. MTX                                /00113801/ [Concomitant]
     Route: 048
     Dates: start: 20071001
  4. INFLIXIMAB [Concomitant]
     Dates: start: 20071001, end: 20080401

REACTIONS (1)
  - HISTIOCYTOSIS HAEMATOPHAGIC [None]
